FAERS Safety Report 4855726-2 (Version None)
Quarter: 2005Q4

REPORT INFORMATION
  Report Type: 
  Country: None (occurrence: None)
  Receive Date: 20051216
  Receipt Date: 20050907
  Transmission Date: 20060501
  Serious: Yes (Other)
  Sender: FDA-Public Use
  Company Number: US-ROCHE-417319

PATIENT
  Sex: Male
  Weight: 4.2 kg

DRUGS (4)
  1. ACCUTANE [Suspect]
     Indication: DRUG USE FOR UNKNOWN INDICATION
     Dates: start: 19860615, end: 19860615
  2. ASACOL [Concomitant]
  3. PRENATAL VITAMINS [Concomitant]
     Indication: PREGNANCY
  4. FOLIC ACID [Concomitant]

REACTIONS (6)
  - CLAVICLE FRACTURE [None]
  - DRUG EXPOSURE DURING PREGNANCY [None]
  - LARGE FOR DATES BABY [None]
  - LIVE BIRTH [None]
  - NEONATAL DISORDER [None]
  - VACUUM EXTRACTOR DELIVERY [None]
